FAERS Safety Report 19067785 (Version 1)
Quarter: 2021Q1

REPORT INFORMATION
  Report Type: Spontaneous
  Country: US (occurrence: US)
  Receive Date: 20210326
  Receipt Date: 20210326
  Transmission Date: 20210420
  Serious: No
  Sender: FDA-Public Use
  Company Number: None

PATIENT
  Age: 71 Year
  Sex: Female
  Weight: 56.84 kg

DRUGS (5)
  1. PHILLIPS STOOL SOFTENER BULK DOCUSATE [Concomitant]
     Active Substance: DOCUSATE SODIUM
  2. TYLENOL [Concomitant]
     Active Substance: ACETAMINOPHEN
  3. XELODA [Suspect]
     Active Substance: CAPECITABINE
     Indication: RECTAL CANCER
     Dosage: ?          OTHER FREQUENCY:BID FOR 14/21D;?
     Route: 048
     Dates: start: 20210218, end: 20210326
  4. LEVETIRACETAM. [Concomitant]
     Active Substance: LEVETIRACETAM
  5. OXYCODONE [Concomitant]
     Active Substance: OXYCODONE

REACTIONS (1)
  - Hospice care [None]

NARRATIVE: CASE EVENT DATE: 20210326
